FAERS Safety Report 10310817 (Version 1)
Quarter: 2014Q3

REPORT INFORMATION
  Report Type: Spontaneous
  Country: JP (occurrence: None)
  Receive Date: 20140714
  Receipt Date: 20140714
  Transmission Date: 20150326
  Serious: Yes (Other)
  Sender: FDA-Public Use
  Company Number: 2014VER00081

PATIENT
  Age: 70 Year
  Sex: Female

DRUGS (1)
  1. TRANEXAMIC ACID (TRANEXAMIC ACID) [Suspect]
     Active Substance: TRANEXAMIC ACID
     Indication: GASTRIC ULCER
     Route: 048

REACTIONS (3)
  - Plasminogen decreased [None]
  - Ligneous conjunctivitis [None]
  - Renal failure [None]
